FAERS Safety Report 26159308 (Version 1)
Quarter: 2025Q4

REPORT INFORMATION
  Report Type: Spontaneous
  Country: US (occurrence: US)
  Receive Date: 20251216
  Receipt Date: 20251216
  Transmission Date: 20260118
  Serious: No
  Sender: ROCHE
  Company Number: US-ROCHE-10000454754

PATIENT
  Age: 41 Year
  Sex: Female

DRUGS (3)
  1. RITUXIMAB [Suspect]
     Active Substance: RITUXIMAB
     Indication: Glomerulonephritis membranous
  2. PREDNISONE [Concomitant]
     Active Substance: PREDNISONE
  3. ELIQUIS [Concomitant]
     Active Substance: APIXABAN

REACTIONS (2)
  - Off label use [Unknown]
  - No adverse event [Unknown]
